FAERS Safety Report 6808809-1 (Version None)
Quarter: 2010Q2

REPORT INFORMATION
  Report Type: 
  Country: None (occurrence: None)
  Receive Date: 20100630
  Receipt Date: 20091019
  Transmission Date: 20101027
  Serious: Yes (Other)
  Sender: FDA-Public Use
  Company Number: US-PFIZER INC-2009275672

PATIENT
  Sex: Male
  Weight: 83.9 kg

DRUGS (2)
  1. XANAX [Suspect]
     Indication: DEPRESSION
     Dosage: DAILY
     Route: 048
     Dates: start: 20070101
  2. XANAX [Suspect]
     Indication: ANXIETY

REACTIONS (4)
  - CIRCUMSTANCE OR INFORMATION CAPABLE OF LEADING TO MEDICATION ERROR [None]
  - INTENTIONAL DRUG MISUSE [None]
  - PANIC ATTACK [None]
  - WITHDRAWAL SYNDROME [None]
